FAERS Safety Report 14071508 (Version 3)
Quarter: 2018Q2

REPORT INFORMATION
  Report Type: Spontaneous
  Country: US (occurrence: US)
  Receive Date: 20171010
  Receipt Date: 20180404
  Transmission Date: 20180711
  Serious: No
  Sender: FDA-Public Use
  Company Number: US-SA-2017SA131339

PATIENT
  Age: 61 Year
  Sex: Male
  Weight: 86 kg

DRUGS (16)
  1. DUPIXENT [Suspect]
     Active Substance: DUPILUMAB
     Indication: DRY SKIN
     Route: 030
     Dates: start: 20170627, end: 20170627
  2. KETOCONAZOLE. [Concomitant]
     Active Substance: KETOCONAZOLE
  3. TYLENOL [Concomitant]
     Active Substance: ACETAMINOPHEN
  4. DUPIXENT [Suspect]
     Active Substance: DUPILUMAB
     Indication: DRY SKIN
     Route: 058
     Dates: start: 20170701
  5. DERMA-SMOOTHE/FS [Concomitant]
     Active Substance: FLUOCINOLONE ACETONIDE
  6. TRIAMCINOLONE [Concomitant]
     Active Substance: TRIAMCINOLONE
  7. DOXYCYCLINE. [Concomitant]
     Active Substance: DOXYCYCLINE
  8. HYDROCORTISONE. [Concomitant]
     Active Substance: HYDROCORTISONE
  9. ALLEGRA [Concomitant]
     Active Substance: FEXOFENADINE HYDROCHLORIDE
  10. CETIRIZINE [Concomitant]
     Active Substance: CETIRIZINE HYDROCHLORIDE
     Indication: RASH
  11. BACTRIM [Concomitant]
     Active Substance: SULFAMETHOXAZOLE\TRIMETHOPRIM
  12. PREDNISONE. [Concomitant]
     Active Substance: PREDNISONE
     Indication: RASH
  13. HYDROXYZINE [Concomitant]
     Active Substance: HYDROXYZINE HYDROCHLORIDE
     Indication: RASH
  14. FLUOCINOLONE [Concomitant]
     Active Substance: FLUOCINOLONE
  15. DUPIXENT [Suspect]
     Active Substance: DUPILUMAB
     Indication: DERMATITIS ATOPIC
     Route: 030
     Dates: start: 20170627, end: 20170627
  16. DUPIXENT [Suspect]
     Active Substance: DUPILUMAB
     Indication: DERMATITIS ATOPIC
     Route: 058
     Dates: start: 20170701

REACTIONS (7)
  - Dry eye [Unknown]
  - Eye discharge [Unknown]
  - Eye pruritus [Unknown]
  - Underdose [Unknown]
  - Lacrimation increased [Unknown]
  - Incorrect route of drug administration [Unknown]
  - Skin exfoliation [Unknown]

NARRATIVE: CASE EVENT DATE: 2017
